FAERS Safety Report 6193392-7 (Version None)
Quarter: 2009Q2

REPORT INFORMATION
  Report Type: 
  Country: None (occurrence: None)
  Receive Date: 20090514
  Receipt Date: 20090514
  Transmission Date: 20091009
  Serious: Yes (Other)
  Sender: FDA-Public Use
  Company Number: None

PATIENT
  Age: 37 Year
  Sex: Female
  Weight: 63.5036 kg

DRUGS (2)
  1. ZOLOFT [Suspect]
     Indication: ANXIETY
     Dosage: 50
     Dates: start: 20090501, end: 20090501
  2. LEXAPRO [Suspect]
     Indication: ANXIETY
     Dosage: 10
     Dates: start: 20090508, end: 20090508

REACTIONS (8)
  - ANOREXIA [None]
  - ANXIETY [None]
  - BURNING SENSATION [None]
  - FEELING ABNORMAL [None]
  - FEELING JITTERY [None]
  - INSOMNIA [None]
  - MENTAL DISORDER [None]
  - UNEVALUABLE EVENT [None]
